FAERS Safety Report 10244534 (Version 1)
Quarter: 2014Q2

REPORT INFORMATION
  Report Type: Spontaneous
  Country: US (occurrence: US)
  Receive Date: 20140618
  Receipt Date: 20140618
  Transmission Date: 20141212
  Serious: No
  Sender: FDA-Public Use
  Company Number: US-VERTEX PHARMACEUTICALS INC-2014-002730

PATIENT
  Age: 45 Year
  Sex: Male

DRUGS (1)
  1. KALYDECO [Suspect]
     Indication: CYSTIC FIBROSIS
     Dosage: UNK, BID
     Route: 065

REACTIONS (1)
  - Abdominal pain upper [Recovered/Resolved]
